FAERS Safety Report 16360285 (Version 1)
Quarter: 2019Q2

REPORT INFORMATION
  Report Type: Spontaneous
  Country: US (occurrence: US)
  Receive Date: 20190528
  Receipt Date: 20190528
  Transmission Date: 20190711
  Serious: No
  Sender: FDA-Public Use
  Company Number: US-DRREDDYS-USA/USA/19/0110513

PATIENT
  Sex: Female

DRUGS (1)
  1. METOPROLOL SUCCINATE ER TABLETS 25 MG + 50 MG [Suspect]
     Active Substance: METOPROLOL SUCCINATE
     Indication: PRODUCT USED FOR UNKNOWN INDICATION
     Dosage: (TWO TABLETS OF 25 MG AT ONCE)
     Route: 048

REACTIONS (2)
  - Gait disturbance [Unknown]
  - Balance disorder [Unknown]
